FAERS Safety Report 19858745 (Version 2)
Quarter: 2025Q2

REPORT INFORMATION
  Report Type: Spontaneous
  Country: US (occurrence: US)
  Receive Date: 20210921
  Receipt Date: 20250603
  Transmission Date: 20250716
  Serious: Yes (Hospitalization, Other)
  Sender: AUROBINDO
  Company Number: US-AUROBINDO-AUR-APL-2021-039382

PATIENT
  Age: 45 Year
  Sex: Female

DRUGS (1)
  1. DEXAMETHASONE [Suspect]
     Active Substance: DEXAMETHASONE
     Indication: Breast cancer metastatic
     Route: 065

REACTIONS (10)
  - Strongyloidiasis [Recovering/Resolving]
  - Klebsiella infection [Recovering/Resolving]
  - Klebsiella bacteraemia [Recovering/Resolving]
  - Vomiting [Recovering/Resolving]
  - Nausea [Recovering/Resolving]
  - Abdominal pain [Recovering/Resolving]
  - Tachypnoea [Recovering/Resolving]
  - Tachycardia [Recovering/Resolving]
  - Leukocytosis [Recovering/Resolving]
  - Product use in unapproved indication [Unknown]
